FAERS Safety Report 14502173 (Version 3)
Quarter: 2023Q1

REPORT INFORMATION
  Report Type: Spontaneous
  Country: US (occurrence: None)
  Receive Date: 20180208
  Receipt Date: 20230222
  Transmission Date: 20230418
  Serious: Yes (Other)
  Sender: FDA-Public Use
  Company Number: 2018SE15644

PATIENT
  Age: 17513 Day
  Sex: Female
  Weight: 77.1 kg

DRUGS (176)
  1. NEXIUM [Suspect]
     Active Substance: ESOMEPRAZOLE MAGNESIUM
     Indication: Gastrooesophageal reflux disease
     Route: 048
     Dates: start: 1995, end: 2013
  2. NEXIUM [Suspect]
     Active Substance: ESOMEPRAZOLE MAGNESIUM
     Indication: Gastrooesophageal reflux disease
     Route: 048
     Dates: start: 2007, end: 2009
  3. NEXIUM [Suspect]
     Active Substance: ESOMEPRAZOLE MAGNESIUM
     Indication: Gastrooesophageal reflux disease
     Route: 048
     Dates: start: 2011, end: 2013
  4. NEXIUM [Suspect]
     Active Substance: ESOMEPRAZOLE MAGNESIUM
     Indication: Gastrooesophageal reflux disease
     Route: 048
     Dates: start: 20070801
  5. NEXIUM [Suspect]
     Active Substance: ESOMEPRAZOLE MAGNESIUM
     Indication: Gastrooesophageal reflux disease
     Route: 048
     Dates: start: 20110120
  6. NEXIUM [Suspect]
     Active Substance: ESOMEPRAZOLE MAGNESIUM
     Indication: Gastrooesophageal reflux disease
     Route: 048
     Dates: start: 20190515
  7. PRILOSEC [Suspect]
     Active Substance: OMEPRAZOLE MAGNESIUM
     Indication: Abdominal discomfort
     Route: 048
     Dates: start: 1995, end: 2013
  8. PRILOSEC [Suspect]
     Active Substance: OMEPRAZOLE MAGNESIUM
     Indication: Gastrooesophageal reflux disease
     Route: 048
     Dates: start: 1995, end: 2013
  9. PRILOSEC [Suspect]
     Active Substance: OMEPRAZOLE MAGNESIUM
     Indication: Abdominal discomfort
     Route: 048
     Dates: start: 1995, end: 1999
  10. PRILOSEC [Suspect]
     Active Substance: OMEPRAZOLE MAGNESIUM
     Indication: Gastrooesophageal reflux disease
     Route: 048
     Dates: start: 1995, end: 1999
  11. PRILOSEC [Suspect]
     Active Substance: OMEPRAZOLE MAGNESIUM
     Indication: Abdominal discomfort
     Route: 048
     Dates: start: 19950406
  12. PRILOSEC [Suspect]
     Active Substance: OMEPRAZOLE MAGNESIUM
     Indication: Gastrooesophageal reflux disease
     Route: 048
     Dates: start: 19950406
  13. PRILOSEC [Suspect]
     Active Substance: OMEPRAZOLE MAGNESIUM
     Indication: Abdominal discomfort
     Route: 048
     Dates: start: 19990506
  14. PRILOSEC [Suspect]
     Active Substance: OMEPRAZOLE MAGNESIUM
     Indication: Gastrooesophageal reflux disease
     Route: 048
     Dates: start: 19990506
  15. PRILOSEC [Suspect]
     Active Substance: OMEPRAZOLE MAGNESIUM
     Indication: Abdominal discomfort
     Route: 048
     Dates: start: 20150215
  16. PRILOSEC [Suspect]
     Active Substance: OMEPRAZOLE MAGNESIUM
     Indication: Gastrooesophageal reflux disease
     Route: 048
     Dates: start: 20150215
  17. PRILOSEC [Suspect]
     Active Substance: OMEPRAZOLE MAGNESIUM
     Indication: Abdominal discomfort
     Route: 048
     Dates: start: 2002
  18. PRILOSEC [Suspect]
     Active Substance: OMEPRAZOLE MAGNESIUM
     Indication: Gastrooesophageal reflux disease
     Route: 048
     Dates: start: 2002
  19. PRILOSEC [Suspect]
     Active Substance: OMEPRAZOLE MAGNESIUM
     Indication: Abdominal discomfort
     Route: 048
     Dates: start: 20020905
  20. PRILOSEC [Suspect]
     Active Substance: OMEPRAZOLE MAGNESIUM
     Indication: Gastrooesophageal reflux disease
     Route: 048
     Dates: start: 20020905
  21. PRILOSEC [Suspect]
     Active Substance: OMEPRAZOLE MAGNESIUM
     Indication: Abdominal discomfort
     Dosage: GENERIC (OMEPRAZOLE)-20MG DAILY
     Route: 048
     Dates: start: 2015
  22. PRILOSEC [Suspect]
     Active Substance: OMEPRAZOLE MAGNESIUM
     Indication: Gastrooesophageal reflux disease
     Dosage: GENERIC (OMEPRAZOLE)-20MG DAILY
     Route: 048
     Dates: start: 2015
  23. PRILOSEC [Suspect]
     Active Substance: OMEPRAZOLE MAGNESIUM
     Indication: Abdominal discomfort
     Dosage: GENERIC (OMEPRAZOLE)-DAILY
     Route: 048
     Dates: start: 20150129
  24. PRILOSEC [Suspect]
     Active Substance: OMEPRAZOLE MAGNESIUM
     Indication: Gastrooesophageal reflux disease
     Dosage: GENERIC (OMEPRAZOLE)-DAILY
     Route: 048
     Dates: start: 20150129
  25. PREVACID [Suspect]
     Active Substance: LANSOPRAZOLE
     Indication: Gastrooesophageal reflux disease
     Route: 065
     Dates: start: 1995, end: 2013
  26. PREVACID [Suspect]
     Active Substance: LANSOPRAZOLE
     Indication: Gastrooesophageal reflux disease
     Route: 065
     Dates: start: 1999, end: 2010
  27. PREVACID [Suspect]
     Active Substance: LANSOPRAZOLE
     Indication: Gastrooesophageal reflux disease
     Route: 065
     Dates: start: 19991029
  28. PREVACID [Suspect]
     Active Substance: LANSOPRAZOLE
     Indication: Gastrooesophageal reflux disease
     Route: 065
     Dates: start: 20090306
  29. PREVACID [Suspect]
     Active Substance: LANSOPRAZOLE
     Indication: Gastrooesophageal reflux disease
     Route: 065
     Dates: start: 2013
  30. PREVACID [Suspect]
     Active Substance: LANSOPRAZOLE
     Indication: Gastrooesophageal reflux disease
     Dosage: GENERIC (LANSOPRAZOLE)- DAILY
     Route: 065
     Dates: start: 1999, end: 2010
  31. PREVACID [Suspect]
     Active Substance: LANSOPRAZOLE
     Indication: Gastrooesophageal reflux disease
     Dosage: GENERIC (LANSOPRAZOLE)-TK 1 C PO BID
     Route: 065
     Dates: start: 20100407
  32. PREVACID [Suspect]
     Active Substance: LANSOPRAZOLE
     Indication: Gastrooesophageal reflux disease
     Dosage: GENERIC (LANSOPRAZOLE)-DAILY
     Route: 065
     Dates: start: 2013
  33. CELEBREX [Concomitant]
     Active Substance: CELECOXIB
     Indication: Pain
     Dates: start: 2007, end: 2014
  34. CELEBREX [Concomitant]
     Active Substance: CELECOXIB
     Indication: Pain
     Route: 048
     Dates: start: 20071010
  35. ATENOLOL [Concomitant]
     Active Substance: ATENOLOL
     Indication: Blood pressure abnormal
     Dosage: TENORMIN-TAKE 1 TAB BY MOUTH 2 TIMES DAILY
     Route: 048
     Dates: start: 19910314
  36. ATENOLOL [Concomitant]
     Active Substance: ATENOLOL
     Indication: Blood pressure abnormal
     Dates: start: 1993
  37. ATENOLOL [Concomitant]
     Active Substance: ATENOLOL
     Indication: Blood pressure abnormal
     Route: 048
     Dates: start: 19930603
  38. TMT/HCTZ [Concomitant]
     Indication: Diuretic therapy
     Dates: start: 1994, end: 2015
  39. TMT/HCTZ [Concomitant]
     Indication: Diuretic therapy
     Dosage: DYAZIDE
     Route: 048
     Dates: start: 19900222
  40. TMT/HCTZ [Concomitant]
     Indication: Diuretic therapy
     Dosage: 37.5/25
     Route: 048
     Dates: start: 19940507
  41. TMT/HCTZ [Concomitant]
     Indication: Diuretic therapy
     Dosage: 75/50-TK 1 T PO DAILY
     Route: 048
     Dates: start: 19951231
  42. VITAMINS [Concomitant]
     Active Substance: VITAMINS
     Indication: Supplementation therapy
     Route: 048
  43. TYLENOL [Concomitant]
     Active Substance: ACETAMINOPHEN
     Indication: Pain
     Route: 048
  44. VITAMIN B12 [Concomitant]
     Active Substance: CYANOCOBALAMIN
     Indication: Supplementation therapy
     Dosage: 1000MCG/ML 10ML-TAKE 1 TAB BY MOUTH DAILY
     Route: 048
     Dates: start: 20040422
  45. ALPHALYPOIC ACID [Concomitant]
     Indication: Diabetes mellitus
     Route: 048
  46. ALPHALYPOIC ACID [Concomitant]
     Indication: Neuralgia
     Route: 048
  47. CITRIZINE [Concomitant]
     Indication: Multiple allergies
  48. CITRIZINE [Concomitant]
     Indication: Multiple allergies
     Dosage: ZYRTEC
     Route: 048
     Dates: start: 20010503
  49. CINNAMON [Concomitant]
     Active Substance: CINNAMON
     Indication: Diabetes mellitus
     Route: 048
  50. TAGAMET [Concomitant]
     Active Substance: CIMETIDINE
     Route: 048
  51. TAGAMET [Concomitant]
     Active Substance: CIMETIDINE
     Dates: start: 2002, end: 2003
  52. RANITIDINE [Concomitant]
     Active Substance: RANITIDINE
     Dosage: GENERIC
     Dates: start: 200109
  53. RANITIDINE [Concomitant]
     Active Substance: RANITIDINE
     Dosage: GENERIC
     Route: 048
     Dates: start: 20010725
  54. RANITIDINE [Concomitant]
     Active Substance: RANITIDINE
     Dosage: ZANTAC
     Route: 048
     Dates: start: 19941205
  55. POTASSIUM [Concomitant]
     Active Substance: POTASSIUM
     Indication: Hypokalaemia
     Dates: start: 2002
  56. POTASSIUM [Concomitant]
     Active Substance: POTASSIUM
     Indication: Hypokalaemia
     Dosage: POTASSIUM CL-TK ONE T PO QD
     Route: 048
     Dates: start: 20050820
  57. POTASSIUM [Concomitant]
     Active Substance: POTASSIUM
     Indication: Hypokalaemia
     Dosage: KLOR-CON
     Route: 048
     Dates: start: 19900328
  58. POTASSIUM [Concomitant]
     Active Substance: POTASSIUM
     Indication: Hypokalaemia
     Dosage: K-DUR
     Route: 048
     Dates: start: 20000130
  59. POTASSIUM [Concomitant]
     Active Substance: POTASSIUM
     Indication: Hypokalaemia
     Dosage: KLOR-CON-TAKE 1 TAB BY MOTH TWICE DAILY
     Route: 048
  60. ALLEGRA [Concomitant]
     Active Substance: FEXOFENADINE HYDROCHLORIDE
     Indication: Multiple allergies
     Dates: start: 1999, end: 2009
  61. ALLEGRA [Concomitant]
     Active Substance: FEXOFENADINE HYDROCHLORIDE
     Indication: Multiple allergies
     Route: 048
     Dates: start: 20050701
  62. ALLEGRA [Concomitant]
     Active Substance: FEXOFENADINE HYDROCHLORIDE
     Indication: Multiple allergies
     Dosage: XALLEGRA
     Route: 048
     Dates: start: 19991029
  63. ALLEGRA [Concomitant]
     Active Substance: FEXOFENADINE HYDROCHLORIDE
     Indication: Multiple allergies
     Dosage: FEXOFENADINE-TK ONE T PO D
     Route: 048
     Dates: start: 20060710
  64. CARBIDOPA AND LEVODOPA CR [Concomitant]
     Indication: Parkinson^s disease
     Dates: start: 2005
  65. CARBIDOPA AND LEVODOPA CR [Concomitant]
     Indication: Parkinson^s disease
     Dosage: 25/100-TK 1 T PO QHS AS SIMENET- TAKE 1 TAB BY MOUTH 2 TIMES A DAY
     Route: 048
     Dates: start: 20050125
  66. LASIX [Concomitant]
     Active Substance: FUROSEMIDE
     Indication: Diuretic therapy
     Dates: start: 2004, end: 2016
  67. LASIX [Concomitant]
     Active Substance: FUROSEMIDE
     Indication: Diuretic therapy
     Dosage: FUROSEMIDE-TK 1 T PO DAILY
     Route: 048
     Dates: start: 20040422
  68. VYTORIN [Concomitant]
     Active Substance: EZETIMIBE\SIMVASTATIN
     Indication: Blood cholesterol abnormal
     Dates: start: 2005, end: 2013
  69. VYTORIN [Concomitant]
     Active Substance: EZETIMIBE\SIMVASTATIN
     Indication: Blood cholesterol abnormal
     Dosage: 10/40-TK 1 T PO QD
     Route: 048
     Dates: start: 20051118
  70. MAXZIDE [Concomitant]
     Active Substance: HYDROCHLOROTHIAZIDE\TRIAMTERENE
     Indication: Diuretic therapy
     Dates: start: 2006, end: 2010
  71. MAXZIDE [Concomitant]
     Active Substance: HYDROCHLOROTHIAZIDE\TRIAMTERENE
     Indication: Diuretic therapy
     Dosage: 75-50 MG-TAKE 1 TAB BY MOUTH DAILY
     Route: 048
  72. SPIRONOLACTONE [Concomitant]
     Active Substance: SPIRONOLACTONE
     Indication: Diuretic therapy
     Dates: start: 2016
  73. HYDROCHLOROTHIAZIDE [Concomitant]
     Active Substance: HYDROCHLOROTHIAZIDE
     Indication: Diuretic therapy
     Dates: start: 2016
  74. HYDROCHLOROTHIAZIDE [Concomitant]
     Active Substance: HYDROCHLOROTHIAZIDE
     Indication: Diuretic therapy
     Route: 048
     Dates: start: 20160516
  75. TRAMADOL [Concomitant]
     Active Substance: TRAMADOL
     Indication: Pain
     Dates: start: 2011
  76. TRAMADOL [Concomitant]
     Active Substance: TRAMADOL
     Indication: Pain
     Dosage: ULTRAM-TAKE 2 TABS BY MOUTH 2 TIMES DAILY
     Route: 048
     Dates: start: 19960517
  77. TRAMADOL [Concomitant]
     Active Substance: TRAMADOL
     Indication: Pain
     Dosage: HCL
     Route: 048
     Dates: start: 20110927
  78. TOPIRAMATE [Concomitant]
     Active Substance: TOPIRAMATE
     Indication: Neuralgia
     Dates: start: 2010
  79. TOPIRAMATE [Concomitant]
     Active Substance: TOPIRAMATE
     Indication: Neuralgia
     Route: 048
     Dates: start: 20100629
  80. FENOFIBRATE [Concomitant]
     Active Substance: FENOFIBRATE
     Indication: Blood cholesterol abnormal
     Dates: start: 2016
  81. FENOFIBRATE [Concomitant]
     Active Substance: FENOFIBRATE
     Indication: Blood cholesterol abnormal
     Route: 048
     Dates: start: 20160317
  82. FERROUS SULFATE [Concomitant]
     Active Substance: FERROUS SULFATE
     Indication: Mineral supplementation
     Dates: start: 2016
  83. FERROUS SULFATE [Concomitant]
     Active Substance: FERROUS SULFATE
     Indication: Mineral supplementation
     Route: 048
     Dates: start: 20160401
  84. DOXYCYCLINE [Concomitant]
     Active Substance: DOXYCYCLINE
     Indication: Infection
     Dosage: HYCLATE-TK ONE C PO BID FOR 15 DAYS
     Route: 048
     Dates: start: 19930302
  85. DOXYCYCLINE [Concomitant]
     Active Substance: DOXYCYCLINE
     Indication: Infection
     Dates: start: 1995
  86. RESTASIS [Concomitant]
     Active Substance: CYCLOSPORINE
     Indication: Dry eye
     Dates: start: 2015
  87. RESTASIS [Concomitant]
     Active Substance: CYCLOSPORINE
     Indication: Dry eye
     Dates: start: 20150129
  88. TIMOLOL/ACECLIDINE [Concomitant]
     Indication: Glaucoma
  89. LATANOPROST [Concomitant]
     Active Substance: LATANOPROST
     Indication: Glaucoma
  90. TIMOLOL/BRIMONIDINE/BIMATOPROST [Concomitant]
     Indication: Glaucoma
  91. VITAMIN D3 [Concomitant]
     Active Substance: CHOLECALCIFEROL
     Indication: Supplementation therapy
  92. VITAMIN C [Concomitant]
     Active Substance: ASCORBIC ACID
     Indication: Supplementation therapy
  93. CALCIUM [Concomitant]
     Active Substance: CALCIUM
     Indication: Supplementation therapy
  94. SULFAMETHOXAZOLE\TRIMETHOPRIM [Concomitant]
     Active Substance: SULFAMETHOXAZOLE\TRIMETHOPRIM
     Dosage: 800/160 TABS-TK 1 T PO BID
     Dates: start: 19900207
  95. SULFAMETHOXAZOLE\TRIMETHOPRIM [Concomitant]
     Active Substance: SULFAMETHOXAZOLE\TRIMETHOPRIM
     Dosage: BACTRIM
     Route: 048
     Dates: start: 19910908
  96. CAPTOPRIL [Concomitant]
     Active Substance: CAPTOPRIL
     Dates: start: 19900222
  97. SELDANE [Concomitant]
     Active Substance: TERFENADINE
     Route: 048
     Dates: start: 19900222
  98. HISMANAL [Concomitant]
     Active Substance: ASTEMIZOLE
     Route: 048
     Dates: start: 19901004
  99. CECLOR [Concomitant]
     Active Substance: CEFACLOR
     Dates: start: 19910125
  100. GUAIFENESIN [Concomitant]
     Active Substance: GUAIFENESIN
     Route: 048
     Dates: start: 19910402
  101. GUAIFENESIN [Concomitant]
     Active Substance: GUAIFENESIN
     Dosage: MYTUSSIN
     Route: 048
     Dates: start: 19911015
  102. GUAIFENESIN [Concomitant]
     Active Substance: GUAIFENESIN
     Dosage: MUCINEX-TAKE BY MOUTH PRN
     Route: 048
     Dates: start: 19911015
  103. PROMETH W/COD [Concomitant]
     Route: 048
     Dates: start: 19910402
  104. ERYTHROMYCIN [Concomitant]
     Active Substance: ERYTHROMYCIN
     Route: 048
     Dates: start: 19910831
  105. ERYTHROMYCIN [Concomitant]
     Active Substance: ERYTHROMYCIN
     Route: 048
     Dates: start: 19911125
  106. BIAXIN [Concomitant]
     Active Substance: CLARITHROMYCIN
     Route: 048
     Dates: start: 19920608
  107. NASACORT [Concomitant]
     Active Substance: TRIAMCINOLONE ACETONIDE
     Dosage: INHALER AER
     Dates: start: 19920608
  108. DECONSAL II [Concomitant]
     Route: 048
     Dates: start: 19920727
  109. SYNTHROID [Concomitant]
     Active Substance: LEVOTHYROXINE SODIUM
     Route: 048
     Dates: start: 19930302
  110. SYNTHROID [Concomitant]
     Active Substance: LEVOTHYROXINE SODIUM
     Dosage: LEVOTHYROXINE-TK ONE T PO D
     Route: 048
     Dates: start: 19930703
  111. SYNTHROID [Concomitant]
     Active Substance: LEVOTHYROXINE SODIUM
     Dosage: LEVOXYL
     Route: 048
     Dates: start: 20031110
  112. SYNTHROID [Concomitant]
     Active Substance: LEVOTHYROXINE SODIUM
     Dosage: LEVOTHYROXINE-TK 1 T PO QD
     Route: 048
     Dates: start: 20070302
  113. SYNTHROID [Concomitant]
     Active Substance: LEVOTHYROXINE SODIUM
     Dosage: LEVOTHYROXINE-TK 1 T PO QD
     Route: 048
     Dates: start: 20070302
  114. SYNTHROID [Concomitant]
     Active Substance: LEVOTHYROXINE SODIUM
     Dosage: LEVOTHYROXINE-TK ONE T PO D
     Route: 048
     Dates: start: 20090306
  115. BECONASE AQ [Concomitant]
     Active Substance: BECLOMETHASONE DIPROPIONATE MONOHYDRATE
     Dosage: AQ NASAL SP
     Dates: start: 19930413
  116. DAYPRO [Concomitant]
     Active Substance: OXAPROZIN
     Route: 048
     Dates: start: 19940625
  117. RELAFEN [Concomitant]
     Active Substance: NABUMETONE
     Route: 048
     Dates: start: 19940725
  118. CEFPROZIL [Concomitant]
     Active Substance: CEFPROZIL
     Dates: start: 19940906
  119. LEVSIN [Concomitant]
     Active Substance: HYOSCYAMINE SULFATE
     Dosage: SL TAB
     Dates: start: 19950530
  120. TUSSIONEX PENNKINETIC [Concomitant]
     Active Substance: CHLORPHENIRAMINE\HYDROCODONE
     Dates: start: 19950928
  121. INDOCIN [Concomitant]
     Active Substance: INDOMETHACIN
     Dosage: SUPP
     Dates: start: 19961004
  122. CLARITIN [Concomitant]
     Active Substance: LORATADINE
     Route: 048
     Dates: start: 19961004
  123. APAP/COD [Concomitant]
     Route: 048
     Dates: start: 19970925
  124. CIPRO [Concomitant]
     Active Substance: CIPROFLOXACIN HYDROCHLORIDE
     Route: 048
     Dates: start: 19971202
  125. LIPITOR [Concomitant]
     Active Substance: ATORVASTATIN CALCIUM
     Route: 048
     Dates: start: 20001128
  126. GLUCOPHAGE [Concomitant]
     Active Substance: METFORMIN HYDROCHLORIDE
     Route: 048
     Dates: start: 20001129
  127. GLUCOPHAGE [Concomitant]
     Active Substance: METFORMIN HYDROCHLORIDE
     Dosage: METFORMIN HCL-TK 1 T PO TID
     Route: 048
     Dates: start: 20020406
  128. GLUCOPHAGE [Concomitant]
     Active Substance: METFORMIN HYDROCHLORIDE
     Route: 048
  129. CYCLOCORT [Concomitant]
     Active Substance: AMCINONIDE
     Dates: start: 20001220
  130. GLYBURIDE [Concomitant]
     Active Substance: GLYBURIDE
     Route: 048
     Dates: start: 20001229
  131. BETAMETHASONE DIPROPIONATE/ALLANTOIN [Concomitant]
     Dates: start: 20010410
  132. NEURONTIN [Concomitant]
     Active Substance: GABAPENTIN
     Route: 048
     Dates: start: 20010503
  133. CARBAMAZEPINE [Concomitant]
     Active Substance: CARBAMAZEPINE
     Dosage: CHW 100
     Dates: start: 20010523
  134. AMITRIPTYLINE [Concomitant]
     Active Substance: AMITRIPTYLINE
     Dates: start: 20010725
  135. CLONAZEPAM [Concomitant]
     Active Substance: CLONAZEPAM
     Route: 048
     Dates: start: 20020425
  136. AVANDIA [Concomitant]
     Active Substance: ROSIGLITAZONE MALEATE
     Route: 048
     Dates: start: 20020506
  137. ADALAT [Concomitant]
     Active Substance: NIFEDIPINE
     Dosage: CC
     Route: 048
     Dates: start: 20020924
  138. PRAVACHOL [Concomitant]
     Active Substance: PRAVASTATIN SODIUM
     Dates: start: 20020924
  139. MEDROXYPROGESTERONE [Concomitant]
     Active Substance: MEDROXYPROGESTERONE
     Route: 048
     Dates: start: 20021024
  140. CENESTIN [Concomitant]
     Active Substance: ESTROGENS, CONJUGATED SYNTHETIC A
     Route: 048
     Dates: start: 20030204
  141. CENESTIN [Concomitant]
     Active Substance: ESTROGENS, CONJUGATED SYNTHETIC A
     Dosage: PREMARIN
     Route: 048
     Dates: start: 20030205
  142. ALESSE 28 [Concomitant]
     Active Substance: ETHINYL ESTRADIOL\LEVONORGESTREL
     Dosage: 28, 3X28
     Route: 048
     Dates: start: 20030526
  143. MIRCETTE [Concomitant]
     Active Substance: DESOGESTREL\ETHINYL ESTRADIOL
     Dosage: 28
     Dates: start: 20031016
  144. MIRCETTE [Concomitant]
     Active Substance: DESOGESTREL\ETHINYL ESTRADIOL
     Dosage: KARIVA-28 DAY
     Dates: start: 20040327
  145. AMIBID DM [Concomitant]
     Dosage: SA
     Dates: start: 20031204
  146. CLARINEX [Concomitant]
     Active Substance: DESLORATADINE
     Dates: start: 20040106
  147. QUININE SULFATE [Concomitant]
     Active Substance: QUININE SULFATE
     Dates: start: 20040427
  148. VIGAMOX [Concomitant]
     Active Substance: MOXIFLOXACIN HYDROCHLORIDE
     Dosage: INT 1 DROP QID TO OPERATED EYE
     Route: 047
     Dates: start: 20041112
  149. JUNEL [Concomitant]
     Active Substance: ETHINYL ESTRADIOL\NORETHINDRONE ACETATE
     Dosage: FE 1/20
     Dates: start: 20050102
  150. JUNEL [Concomitant]
     Active Substance: ETHINYL ESTRADIOL\NORETHINDRONE ACETATE
     Dosage: MICROGESTIN 1/20 FE-TK ONE T PO QD
     Dates: start: 20050701
  151. FLUPENTIXOL DIHYDROCHLORIDE/NORTRIPTYLINE HYDROCHLORIDE [Concomitant]
     Dates: start: 20051012
  152. FLUPENTIXOL DIHYDROCHLORIDE/NORTRIPTYLINE HYDROCHLORIDE [Concomitant]
     Route: 048
     Dates: start: 20060121
  153. FLUPENTIXOL DIHYDROCHLORIDE/NORTRIPTYLINE HYDROCHLORIDE [Concomitant]
     Dates: start: 2005
  154. LEVAQUIN [Concomitant]
     Active Substance: LEVOFLOXACIN
     Dates: start: 20051012
  155. PATANOL [Concomitant]
     Active Substance: OLOPATADINE HYDROCHLORIDE
     Indication: Eye pruritus
     Dosage: INSTILL ONE DROP IN OU BID
     Route: 047
     Dates: start: 20060921
  156. PHENOBARBITAL [Concomitant]
     Active Substance: PHENOBARBITAL
     Route: 048
     Dates: start: 20090702
  157. PHENOBARBITAL [Concomitant]
     Active Substance: PHENOBARBITAL
     Route: 048
     Dates: start: 20081231
  158. COMBIGAN [Concomitant]
     Active Substance: BRIMONIDINE TARTRATE\TIMOLOL MALEATE
     Dosage: 0.2/0.5% OPTH SOLN 5ML-INSTILL 1 DROP IN LEFT EYE BID
     Route: 047
     Dates: start: 20081211
  159. ACETAMINOPHEN\HYDROCODONE BITARTRATE [Concomitant]
     Active Substance: ACETAMINOPHEN\HYDROCODONE BITARTRATE
     Dosage: 7.5MG/500MG-TK 1 T PO Q 4-6 H PRN
     Route: 048
     Dates: start: 20081028
  160. SIMVASTATIN [Concomitant]
     Active Substance: SIMVASTATIN
     Route: 048
     Dates: start: 20090306
  161. PREDNISONE [Concomitant]
     Active Substance: PREDNISONE
     Route: 048
     Dates: start: 20100326
  162. PROVENTIL [Concomitant]
     Active Substance: ALBUTEROL
     Indication: Dyspnoea
     Dosage: HFA INH (200 PUFFS) 6.7GM-INHALE 2 PUFFS Q 4 H
     Route: 048
     Dates: start: 20100326
  163. PROVENTIL [Concomitant]
     Active Substance: ALBUTEROL
     Indication: Wheezing
     Dosage: HFA INH (200 PUFFS) 6.7GM-INHALE 2 PUFFS Q 4 H
     Route: 048
     Dates: start: 20100326
  164. CLOBETASOL PROPIONATE [Concomitant]
     Active Substance: CLOBETASOL PROPIONATE
     Dosage: 60GM-APP AA BID
     Dates: start: 20100119
  165. VITAMIN D2 [Concomitant]
     Active Substance: ERGOCALCIFEROL
     Dosage: 50,000 IU- TAKE 1 CAP BY MOUTH EVERY 30 DAYS
     Route: 048
     Dates: start: 20110314
  166. OFLOXACIN [Concomitant]
     Active Substance: OFLOXACIN
     Route: 047
     Dates: start: 20130108
  167. AZOPT [Concomitant]
     Active Substance: BRINZOLAMIDE
     Route: 047
     Dates: start: 20130426
  168. VEXOL [Concomitant]
     Active Substance: RIMEXOLONE
     Route: 047
     Dates: start: 20130429
  169. DULOXETINE [Concomitant]
     Active Substance: DULOXETINE
     Route: 048
     Dates: start: 20130823
  170. JANUVIA [Concomitant]
     Active Substance: SITAGLIPTIN PHOSPHATE
     Route: 048
     Dates: start: 20160412
  171. VICTOZA [Concomitant]
     Active Substance: LIRAGLUTIDE
     Dosage: 18MG/3ML INJ
     Dates: start: 20160429
  172. AMLODIPINE BESYLATE AND BENAZEPRIL HYDROCHLORIDE [Concomitant]
     Active Substance: AMLODIPINE BESYLATE\BENAZEPRIL HYDROCHLORIDE
  173. NORTRIPTYLINE [Concomitant]
     Active Substance: NORTRIPTYLINE
  174. LASSITER [Concomitant]
  175. ALPHA LLPOIC ACID [Concomitant]
  176. CARBIDOPA [Concomitant]
     Active Substance: CARBIDOPA

REACTIONS (4)
  - Acute kidney injury [Unknown]
  - Renal failure [Unknown]
  - Chronic kidney disease [Not Recovered/Not Resolved]
  - Chronic kidney disease-mineral and bone disorder [Unknown]

NARRATIVE: CASE EVENT DATE: 20020905
